FAERS Safety Report 6356349-9 (Version None)
Quarter: 2009Q3

REPORT INFORMATION
  Report Type: 
  Country: None (occurrence: None)
  Receive Date: 20090911
  Receipt Date: 20090911
  Transmission Date: 20100115
  Serious: Yes (Other)
  Sender: FDA-Public Use
  Company Number: None

PATIENT
  Age: 46 Year
  Sex: Male
  Weight: 138.9 kg

DRUGS (1)
  1. PRECEDEX [Suspect]
     Indication: SEDATION
     Dosage: 200 MCG CONTINUOUS IV
     Route: 042
     Dates: start: 20090908, end: 20090909

REACTIONS (1)
  - BLOOD PRESSURE ABNORMAL [None]
